FAERS Safety Report 4497594-7 (Version None)
Quarter: 2004Q4

REPORT INFORMATION
  Report Type: 
  Country: None (occurrence: None)
  Receive Date: 20041110
  Receipt Date: 20041102
  Transmission Date: 20050328
  Serious: Yes (Other)
  Sender: FDA-Public Use
  Company Number: NL-JNJFOC-20041101658

PATIENT
  Sex: Female

DRUGS (5)
  1. REMINYL [Suspect]
     Indication: DEMENTIA
     Route: 065
  2. LIPITOR [Concomitant]
     Route: 065
  3. ZOPICLON [Concomitant]
     Route: 065
  4. ATENOLOLUM [Concomitant]
     Route: 065
  5. CARBASALATE CALCIUM [Concomitant]
     Route: 065

REACTIONS (1)
  - NEPHROTIC SYNDROME [None]
